FAERS Safety Report 13291760 (Version 3)
Quarter: 2017Q1

REPORT INFORMATION
  Report Type: Spontaneous
  Country: PT (occurrence: PT)
  Receive Date: 20170303
  Receipt Date: 20170315
  Transmission Date: 20170428
  Serious: Yes (Disabling, Other)
  Sender: FDA-Public Use
  Company Number: PT-009507513-1702PRT011680

PATIENT
  Age: 69 Year
  Sex: Female
  Weight: 64 kg

DRUGS (9)
  1. VARFINE [Concomitant]
     Active Substance: WARFARIN SODIUM
     Indication: PROPHYLAXIS
     Dosage: 5 MG, PRN
     Route: 048
  2. RUPATADINE [Concomitant]
     Active Substance: RUPATADINE
     Indication: NASAL CONGESTION
     Dosage: 10 MG, PRN
  3. NASOMET [Suspect]
     Active Substance: MOMETASONE FUROATE
     Indication: NASAL CONGESTION
     Dosage: 2 DF, QD
     Route: 045
     Dates: start: 20161103, end: 20170204
  4. BISOPROLOL [Concomitant]
     Active Substance: BISOPROLOL
     Indication: CARDIAC FAILURE
     Dosage: 2.5 MG, QD
     Route: 048
  5. ADALGUR N [Concomitant]
     Active Substance: ACETAMINOPHEN\THIOCOLCHICOSIDE
     Indication: BACK PAIN
     Dosage: 1 DF, PRN
     Route: 048
  6. THIOCOLCHICOSIDE [Concomitant]
     Active Substance: THIOCOLCHICOSIDE
     Indication: BACK PAIN
     Dosage: UNK
  7. NASOMET [Suspect]
     Active Substance: MOMETASONE FUROATE
     Dosage: 1 DF, QD
     Route: 045
  8. ALBUTEROL. [Concomitant]
     Active Substance: ALBUTEROL
     Indication: NASAL CONGESTION
     Dosage: 10 MG, PRN
     Route: 048
  9. ACETAMINOPHEN. [Concomitant]
     Active Substance: ACETAMINOPHEN
     Dosage: UNK
     Route: 048

REACTIONS (10)
  - Dysgeusia [Not Recovered/Not Resolved]
  - Dyspnoea [Recovered/Resolved]
  - Tremor [Recovered/Resolved]
  - Anosmia [Not Recovered/Not Resolved]
  - Tongue oedema [Recovered/Resolved]
  - Urticaria [Recovered/Resolved]
  - Erythema [Recovered/Resolved]
  - Swelling face [Recovered/Resolved]
  - Eyelid myoclonus [Recovered/Resolved]
  - Laryngeal oedema [Recovered/Resolved]

NARRATIVE: CASE EVENT DATE: 201612
